FAERS Safety Report 17271743 (Version 2)
Quarter: 2020Q2

REPORT INFORMATION
  Report Type: Report from Study
  Country: FR (occurrence: FR)
  Receive Date: 20200115
  Receipt Date: 20200430
  Transmission Date: 20200713
  Serious: Yes (Other)
  Sender: FDA-Public Use
  Company Number: FR-ROCHE-2395118

PATIENT
  Age: 67 Year
  Sex: Male
  Weight: 90 kg

DRUGS (12)
  1. VP-16 [Suspect]
     Active Substance: ETOPOSIDE
     Route: 065
     Dates: start: 20090731
  2. ARACYTINE [Suspect]
     Active Substance: CYTARABINE
     Route: 065
     Dates: start: 20090922
  3. PREDNISONE. [Suspect]
     Active Substance: PREDNISONE
     Indication: MALIGNANT LYMPHOID NEOPLASM
     Route: 065
     Dates: start: 20090703
  4. RITUXIMAB. [Suspect]
     Active Substance: RITUXIMAB
     Indication: MALIGNANT LYMPHOID NEOPLASM
     Route: 065
     Dates: start: 20090703
  5. METHOTREXATE. [Suspect]
     Active Substance: METHOTREXATE
     Indication: MALIGNANT LYMPHOID NEOPLASM
     Route: 065
     Dates: start: 20090703
  6. CARMUSTINE. [Suspect]
     Active Substance: CARMUSTINE
     Route: 065
     Dates: start: 20090731
  7. RITUXIMAB. [Suspect]
     Active Substance: RITUXIMAB
     Route: 065
     Dates: start: 20090922
  8. PREDNISONE. [Suspect]
     Active Substance: PREDNISONE
     Route: 065
     Dates: start: 20090731
  9. CARMUSTINE. [Suspect]
     Active Substance: CARMUSTINE
     Indication: MALIGNANT LYMPHOID NEOPLASM
     Route: 065
     Dates: start: 20090703
  10. METHOTREXATE. [Suspect]
     Active Substance: METHOTREXATE
     Route: 065
     Dates: start: 20090731
  11. VP-16 [Suspect]
     Active Substance: ETOPOSIDE
     Indication: MALIGNANT LYMPHOID NEOPLASM
     Route: 065
     Dates: start: 20090703
  12. ARACYTINE [Suspect]
     Active Substance: CYTARABINE
     Indication: MALIGNANT LYMPHOID NEOPLASM
     Dosage: 11.55
     Route: 065
     Dates: start: 20090831

REACTIONS (1)
  - Toxic leukoencephalopathy [Not Recovered/Not Resolved]

NARRATIVE: CASE EVENT DATE: 20171204
